FAERS Safety Report 8057252-9 (Version None)
Quarter: 2012Q1

REPORT INFORMATION
  Report Type: 
  Country: None (occurrence: None)
  Receive Date: 20120119
  Receipt Date: 20120113
  Transmission Date: 20120608
  Serious: Yes (Hospitalization, Other)
  Sender: FDA-Public Use
  Company Number: PHEH2009US17998

PATIENT
  Sex: Male

DRUGS (17)
  1. LISINOPRIL [Concomitant]
     Dosage: 10 MG, UNK
     Route: 048
  2. LEVAQUIN [Concomitant]
     Dosage: 500 MG, UNK
     Route: 048
  3. OMNARIS [Concomitant]
  4. OMEPRAZOLE [Concomitant]
  5. ROCEPHIN [Concomitant]
  6. PROTONIX [Concomitant]
     Dosage: 40 MG, UNK
     Route: 048
  7. ZOMETA [Suspect]
     Indication: MULTIPLE MYELOMA
     Dosage: 4 MG, QMO
     Route: 042
     Dates: start: 20050801, end: 20051101
  8. CARDURA [Concomitant]
     Route: 048
  9. GLIPIZIDE [Concomitant]
     Route: 048
  10. FLOMAX [Concomitant]
  11. FLAGYL [Concomitant]
  12. ZYRTEC [Concomitant]
  13. AMBIEN [Concomitant]
  14. MEDROL [Concomitant]
  15. LORATADINE [Concomitant]
  16. CIALIS [Concomitant]
  17. AZITHROMYCIN [Concomitant]

REACTIONS (60)
  - HAEMATURIA [None]
  - ABDOMINAL DISTENSION [None]
  - DIARRHOEA [None]
  - DIABETES MELLITUS [None]
  - BRONCHITIS [None]
  - LOWER URINARY TRACT SYMPTOMS [None]
  - PROCTALGIA [None]
  - HAEMANGIOMA [None]
  - DYSPNOEA [None]
  - RECTAL HAEMORRHAGE [None]
  - HAEMATOCHEZIA [None]
  - HYPONATRAEMIA [None]
  - HAEMORRHOIDAL HAEMORRHAGE [None]
  - RESPIRATORY FAILURE [None]
  - COMPRESSION FRACTURE [None]
  - EMOTIONAL DISTRESS [None]
  - ANHEDONIA [None]
  - OSTEOARTHRITIS [None]
  - PNEUMONIA [None]
  - DECREASED APPETITE [None]
  - RENAL FAILURE CHRONIC [None]
  - BENIGN PROSTATIC HYPERPLASIA [None]
  - HAEMORRHOIDS [None]
  - BACK PAIN [None]
  - COLITIS [None]
  - LOSS OF CONSCIOUSNESS [None]
  - DISABILITY [None]
  - ANAEMIA [None]
  - NEOPLASM PROSTATE [None]
  - SYNCOPE [None]
  - SEPSIS [None]
  - GASTRITIS [None]
  - LUNG NEOPLASM [None]
  - AORTIC CALCIFICATION [None]
  - ANAL PRURITUS [None]
  - FACE OEDEMA [None]
  - ABDOMINAL DISCOMFORT [None]
  - CHRONIC SINUSITIS [None]
  - TRICUSPID VALVE INCOMPETENCE [None]
  - MITRAL VALVE INCOMPETENCE [None]
  - ERECTILE DYSFUNCTION [None]
  - ANORECTAL DISORDER [None]
  - PAIN [None]
  - DEFORMITY [None]
  - IMPAIRED WORK ABILITY [None]
  - EXOSTOSIS [None]
  - GASTROENTERITIS [None]
  - LUNG INFILTRATION [None]
  - AORTIC ARTERIOSCLEROSIS [None]
  - LEFT VENTRICULAR HYPERTROPHY [None]
  - TACHYCARDIA [None]
  - COUGH [None]
  - EXPOSED BONE IN JAW [None]
  - PERIODONTITIS [None]
  - OSTEONECROSIS OF JAW [None]
  - SPINAL OSTEOARTHRITIS [None]
  - HYPERTENSION [None]
  - URINARY TRACT OBSTRUCTION [None]
  - UPPER RESPIRATORY TRACT INFECTION [None]
  - NEUROPATHY PERIPHERAL [None]
